FAERS Safety Report 8048733-2 (Version None)
Quarter: 2012Q1

REPORT INFORMATION
  Report Type: 
  Country: None (occurrence: None)
  Receive Date: 20120117
  Receipt Date: 20120109
  Transmission Date: 20120608
  Serious: Yes (Congenital Anomaly, Other)
  Sender: FDA-Public Use
  Company Number: US-UCBSA-049405

PATIENT
  Sex: Male

DRUGS (3)
  1. KEPPRA [Suspect]
     Indication: EPILEPSY
     Dosage: 1250
     Route: 064
     Dates: start: 20060613, end: 20060826
  2. KEPPRA [Suspect]
     Dosage: 1000
     Route: 064
     Dates: end: 20060613
  3. FOLIC ACID [Concomitant]
     Route: 064
     Dates: end: 20060826

REACTIONS (6)
  - PREMATURE BABY [None]
  - FOETAL EXPOSURE DURING PREGNANCY [None]
  - CONGENITAL NAIL DISORDER [None]
  - LOW BIRTH WEIGHT BABY [None]
  - VENTRICULAR SEPTAL DEFECT [None]
  - LIMB MALFORMATION [None]
